FAERS Safety Report 7180218-8 (Version None)
Quarter: 2010Q4

REPORT INFORMATION
  Report Type: 
  Country: None (occurrence: None)
  Receive Date: 20101123
  Receipt Date: 20100810
  Transmission Date: 20110411
  Serious: No
  Sender: FDA-Public Use
  Company Number: 017077

PATIENT
  Sex: Male
  Weight: 92.1 kg

DRUGS (6)
  1. CIMZIA [Suspect]
     Indication: CROHN'S DISEASE
     Dosage: (400 MG 1X/MONTH SUBCUTANEOUS)
     Route: 058
     Dates: start: 20100501
  2. ENTOCORT EC [Concomitant]
  3. HYOSCYAMINE [Concomitant]
  4. SIMVASTATIN [Concomitant]
  5. TRIAMTERENE [Concomitant]
  6. AMARYL [Concomitant]

REACTIONS (2)
  - DYSPHONIA [None]
  - THROAT IRRITATION [None]
